FAERS Safety Report 23831480 (Version 1)
Quarter: 2024Q2

REPORT INFORMATION
  Report Type: Spontaneous
  Country: ZA (occurrence: None)
  Receive Date: 20240508
  Receipt Date: 20240508
  Transmission Date: 20240715
  Serious: Yes (Hospitalization, Other)
  Sender: FDA-Public Use
  Company Number: 2024A105013

PATIENT
  Age: 17532 Day
  Sex: Female

DRUGS (10)
  1. DAPAGLIFLOZIN PROPANEDIOL [Suspect]
     Active Substance: DAPAGLIFLOZIN PROPANEDIOL
     Indication: Diabetes mellitus
     Dosage: 10.0MG UNKNOWN
     Route: 048
  2. SIMVASTATIN [Concomitant]
     Active Substance: SIMVASTATIN
  3. ASPIRIN [Concomitant]
     Active Substance: ASPIRIN
  4. TEGRETOL XR [Concomitant]
     Active Substance: CARBAMAZEPINE
  5. TENDIAP MR [Concomitant]
  6. METFORMIN HYDROCHLORIDE [Concomitant]
     Active Substance: METFORMIN HYDROCHLORIDE
  7. ADCO-ZETOMAX [Concomitant]
  8. AMITRIPTYLINE HCL KIARA [Concomitant]
  9. PENDINE [Concomitant]
  10. VILDAGLIPTIN [Concomitant]
     Active Substance: VILDAGLIPTIN

REACTIONS (1)
  - Spinal stenosis [Unknown]
